FAERS Safety Report 23572686 (Version 1)
Quarter: 2024Q1

REPORT INFORMATION
  Report Type: Spontaneous
  Country: US (occurrence: US)
  Receive Date: 20240227
  Receipt Date: 20240227
  Transmission Date: 20240410
  Serious: No
  Sender: FDA-Public Use
  Company Number: US-AVADEL CNS PHARMACEUTICALS, LLC-2023AVA00537

PATIENT
  Age: 28 Year
  Sex: Female

DRUGS (1)
  1. LUMRYZ [Suspect]
     Active Substance: SODIUM OXYBATE
     Dosage: 9 G, NIGHTLY
     Dates: start: 2023

REACTIONS (2)
  - Sleep talking [Not Recovered/Not Resolved]
  - Parasomnia [Not Recovered/Not Resolved]

NARRATIVE: CASE EVENT DATE: 20231117
